FAERS Safety Report 20694267 (Version 1)
Quarter: 2022Q2

REPORT INFORMATION
  Report Type: Spontaneous
  Country: US (occurrence: US)
  Receive Date: 20220411
  Receipt Date: 20220411
  Transmission Date: 20220721
  Serious: Yes (Other)
  Sender: FDA-Public Use
  Company Number: US-CELLTRION INC.-2022US004375

PATIENT

DRUGS (3)
  1. TRUXIMA [Suspect]
     Active Substance: RITUXIMAB-ABBS
     Indication: Autoimmune haemolytic anaemia
     Dosage: 700, FREQUENCY WEEKLY
     Dates: start: 20220309
  2. TRUXIMA [Suspect]
     Active Substance: RITUXIMAB-ABBS
     Indication: Lymphadenopathy
     Dosage: 700 WEEKLY
     Dates: start: 20220316
  3. TRUXIMA [Suspect]
     Active Substance: RITUXIMAB-ABBS
     Dosage: 700 WEEKLY
     Dates: start: 20220323

REACTIONS (3)
  - Autoimmune haemolytic anaemia [Unknown]
  - Lymphadenopathy [Unknown]
  - Off label use [Unknown]
